FAERS Safety Report 17451219 (Version 7)
Quarter: 2020Q4

REPORT INFORMATION
  Report Type: Spontaneous
  Country: ES (occurrence: ES)
  Receive Date: 20200224
  Receipt Date: 20201217
  Transmission Date: 20210113
  Serious: Yes (Other)
  Sender: FDA-Public Use
  Company Number: ES-009507513-2002ESP005189

PATIENT
  Age: 53 Year
  Sex: Female

DRUGS (6)
  1. BOSENTAN. [Interacting]
     Active Substance: BOSENTAN
     Dosage: 125 MILLIGRAM, TWICE DAILY
     Dates: start: 201804
  2. BOSENTAN. [Interacting]
     Active Substance: BOSENTAN
     Indication: PULMONARY ARTERIAL HYPERTENSION
     Dosage: 125 MILLIGRAM, TWICE DAILY
     Dates: start: 201801, end: 201801
  3. TADALAFIL. [Concomitant]
     Active Substance: TADALAFIL
     Indication: PULMONARY ARTERIAL HYPERTENSION
     Dosage: 20 MILLIGRAM, ONCE A DAY
     Dates: start: 201801, end: 201801
  4. COBICISTAT (+) DARUNAVIR [Interacting]
     Active Substance: COBICISTAT\DARUNAVIR ETHANOLATE
     Indication: HIV INFECTION
     Dosage: 800/150 MG, QD
     Dates: start: 201804
  5. RALTEGRAVIR POTASSIUM [Suspect]
     Active Substance: RALTEGRAVIR POTASSIUM
     Indication: HIV INFECTION
     Dosage: 400 MILLIGRAM, TWICE DAILY
     Route: 048
     Dates: start: 201801
  6. TADALAFIL. [Concomitant]
     Active Substance: TADALAFIL
     Dosage: 20 MILLIGRAM, ONCE A DAY (REINTRODUCED DOSE)
     Dates: start: 201804

REACTIONS (3)
  - Virologic failure [Unknown]
  - Viral mutation identified [Unknown]
  - Pathogen resistance [Unknown]
